FAERS Safety Report 6589149-5 (Version None)
Quarter: 2010Q1

REPORT INFORMATION
  Report Type: 
  Country: None (occurrence: None)
  Receive Date: 20100218
  Receipt Date: 20100201
  Transmission Date: 20100710
  Serious: Yes (Hospitalization)
  Sender: FDA-Public Use
  Company Number: PHHY2010CH05140

PATIENT
  Age: 66 Year
  Sex: Female

DRUGS (1)
  1. RASILEZ [Suspect]
     Indication: HYPERTENSION
     Dosage: 300 MG PER DAY
     Dates: start: 20081001, end: 20090910

REACTIONS (7)
  - ANGIOEDEMA [None]
  - FEELING HOT [None]
  - OEDEMA MOUTH [None]
  - PERIORBITAL OEDEMA [None]
  - RASH MACULAR [None]
  - SWOLLEN TONGUE [None]
  - TYPE I HYPERSENSITIVITY [None]
